FAERS Safety Report 19279156 (Version 1)
Quarter: 2021Q2

REPORT INFORMATION
  Report Type: Spontaneous
  Country: RU (occurrence: RU)
  Receive Date: 20210520
  Receipt Date: 20210520
  Transmission Date: 20210717
  Serious: Yes (Other)
  Sender: FDA-Public Use
  Company Number: RU-ROCHE-2830411

PATIENT
  Age: 62 Year
  Sex: Male

DRUGS (3)
  1. ATEZOLIZUMAB. [Suspect]
     Active Substance: ATEZOLIZUMAB
     Indication: LUNG CARCINOMA CELL TYPE UNSPECIFIED STAGE III
     Route: 042
  2. CARBOPLATIN. [Suspect]
     Active Substance: CARBOPLATIN
     Indication: LUNG CARCINOMA CELL TYPE UNSPECIFIED STAGE III
     Route: 065
  3. ETOPOSIDE. [Suspect]
     Active Substance: ETOPOSIDE
     Indication: LUNG CARCINOMA CELL TYPE UNSPECIFIED STAGE III
     Route: 065

REACTIONS (1)
  - Hypothyroidism [Unknown]
